FAERS Safety Report 19578367 (Version 1)
Quarter: 2021Q3

REPORT INFORMATION
  Report Type: Spontaneous
  Country: US (occurrence: US)
  Receive Date: 20210719
  Receipt Date: 20210719
  Transmission Date: 20211014
  Serious: Yes (Other)
  Sender: FDA-Public Use
  Company Number: US-SUNOVION-2021SUN002664

PATIENT
  Sex: Male

DRUGS (3)
  1. LATUDA [Suspect]
     Active Substance: LURASIDONE HYDROCHLORIDE
     Dosage: UNK
     Route: 048
  2. LAMICTAL [Concomitant]
     Active Substance: LAMOTRIGINE
     Dosage: UNK
  3. LATUDA [Suspect]
     Active Substance: LURASIDONE HYDROCHLORIDE
     Indication: BIPOLAR DISORDER
     Dosage: UNK
     Route: 048

REACTIONS (9)
  - Exposure to noise [Unknown]
  - Memory impairment [Unknown]
  - Feeling of despair [Unknown]
  - Decreased interest [Unknown]
  - Feeling abnormal [Unknown]
  - Anxiety [Unknown]
  - Weight increased [Unknown]
  - Somnolence [Unknown]
  - Disturbance in attention [Unknown]
